FAERS Safety Report 9214383 (Version 2)
Quarter: 2013Q4

REPORT INFORMATION
  Report Type: Spontaneous
  Country: US (occurrence: US)
  Receive Date: 20130405
  Receipt Date: 20131226
  Transmission Date: 20140711
  Serious: Yes (Hospitalization, Disabling, Other)
  Sender: FDA-Public Use
  Company Number: US-BAYER-2013-040485

PATIENT
  Age: 28 Year
  Sex: Female

DRUGS (7)
  1. YAZ [Suspect]
     Dosage: UNK
     Dates: start: 2008
  2. YASMIN [Suspect]
     Dosage: UNK
     Dates: start: 2008
  3. OCELLA [Suspect]
     Dosage: UNK
     Dates: start: 2008
  4. ZOLPIDEM TARTRATE [Concomitant]
  5. GABAPENTIN [Concomitant]
     Dosage: 300 MG, UNK
  6. AZITHROMYCIN [Concomitant]
     Dosage: 250 MG, UNK
  7. CIPRODEX [Concomitant]

REACTIONS (7)
  - Gallbladder disorder [None]
  - Pain [None]
  - Deformity [None]
  - Anxiety [None]
  - Anhedonia [None]
  - Injury [None]
  - Biliary dyskinesia [None]
